FAERS Safety Report 10663328 (Version 6)
Quarter: 2015Q2

REPORT INFORMATION
  Report Type: Spontaneous
  Country: US (occurrence: US)
  Receive Date: 20141218
  Receipt Date: 20150520
  Transmission Date: 20150821
  Serious: Yes (Other)
  Sender: FDA-Public Use
  Company Number: US-GLAXOSMITHKLINE-A1088876A

PATIENT
  Age: 56 Year
  Sex: Female
  Weight: 73.5 kg

DRUGS (28)
  1. ACETAMINOPHEN. [Concomitant]
     Active Substance: ACETAMINOPHEN
  2. NAPROXEN. [Concomitant]
     Active Substance: NAPROXEN
  3. TRASTUZUMAB [Concomitant]
     Active Substance: TRASTUZUMAB
  4. MUPIROCIN. [Concomitant]
     Active Substance: MUPIROCIN
  5. TYKERB [Suspect]
     Active Substance: LAPATINIB DITOSYLATE
     Indication: BREAST CANCER FEMALE
     Dosage: 250 MG X 4 TABLETS = 1000MG TOTAL DOSE
     Route: 048
     Dates: start: 20140826, end: 20150208
  6. AMBIEN [Concomitant]
     Active Substance: ZOLPIDEM TARTRATE
  7. ATIVAN [Concomitant]
     Active Substance: LORAZEPAM
  8. METHYLPREDNISOLONE. [Concomitant]
     Active Substance: METHYLPREDNISOLONE
  9. VITAMIN D3 [Concomitant]
     Active Substance: CHOLECALCIFEROL
  10. ONDANSETRON [Concomitant]
     Active Substance: ONDANSETRON
  11. RANITIDINE [Concomitant]
     Active Substance: RANITIDINE\RANITIDINE HYDROCHLORIDE
  12. PRAVASTATIN [Concomitant]
     Active Substance: PRAVASTATIN\PRAVASTATIN SODIUM
  13. LETROZOLE. [Concomitant]
     Active Substance: LETROZOLE
  14. ASPIRIN. [Concomitant]
     Active Substance: ASPIRIN
  15. DOXYCYCLINE. [Concomitant]
     Active Substance: DOXYCYCLINE
  16. HYDROCODONE BITARTRATE AND ACETAMINOPHEN [Concomitant]
     Active Substance: ACETAMINOPHEN\HYDROCODONE BITARTRATE
  17. TYLENOL [Concomitant]
     Active Substance: ACETAMINOPHEN
  18. LEVAQUIN [Concomitant]
     Active Substance: LEVOFLOXACIN
  19. CLOBETASOL PROPIONATE. [Concomitant]
     Active Substance: CLOBETASOL PROPIONATE
  20. EPINASTINE HYDROCHLORIDE. [Concomitant]
     Active Substance: EPINASTINE HYDROCHLORIDE
  21. FEMARA [Concomitant]
     Active Substance: LETROZOLE
  22. CEPHALEXIN. [Suspect]
     Active Substance: CEPHALEXIN
     Indication: PRODUCT USED FOR UNKNOWN INDICATION
     Dosage: 500 MG, BID
     Route: 048
  23. COLACE [Concomitant]
     Active Substance: DOCUSATE SODIUM
  24. MILK OF MAGNESIA [Concomitant]
     Active Substance: MAGNESIUM HYDROXIDE
  25. TRAMADOL HYDROCHLORIDE. [Concomitant]
     Active Substance: TRAMADOL HYDROCHLORIDE
  26. ZANTAC [Concomitant]
     Active Substance: RANITIDINE HYDROCHLORIDE
  27. XGEVA [Concomitant]
     Active Substance: DENOSUMAB
     Indication: METASTASES TO BONE
     Dosage: UNK
  28. MEDROL [Concomitant]
     Active Substance: METHYLPREDNISOLONE

REACTIONS (20)
  - Melaena [Unknown]
  - Skin disorder [Recovering/Resolving]
  - Pain [Recovering/Resolving]
  - Skin lesion [Recovering/Resolving]
  - Arthralgia [Not Recovered/Not Resolved]
  - Bone pain [Unknown]
  - Pneumonia [Recovering/Resolving]
  - Rash [Recovering/Resolving]
  - Urinary incontinence [Unknown]
  - Pain in extremity [Unknown]
  - Acne [Unknown]
  - Pneumonitis [Recovering/Resolving]
  - Skin fissures [Recovering/Resolving]
  - Chest pain [Not Recovered/Not Resolved]
  - Epistaxis [Recovering/Resolving]
  - Paraesthesia [Unknown]
  - Leukopenia [Unknown]
  - Diarrhoea [Not Recovered/Not Resolved]
  - Fatigue [Not Recovered/Not Resolved]
  - Pleuritic pain [Unknown]

NARRATIVE: CASE EVENT DATE: 201410
